FAERS Safety Report 7207493-5 (Version None)
Quarter: 2010Q4

REPORT INFORMATION
  Report Type: 
  Country: None (occurrence: None)
  Receive Date: 20101212
  Receipt Date: 20101213
  Transmission Date: 20110411
  Serious: Yes (Other)
  Sender: FDA-Public Use
  Company Number: JP-1184444

PATIENT

DRUGS (1)
  1. TRAVATAN [Suspect]
     Indication: GLAUCOMA
     Dosage: 1 GTT QD, OPHTHALMIC
     Route: 047
     Dates: start: 20101101, end: 20101210

REACTIONS (2)
  - CORNEAL DISORDER [None]
  - VISUAL IMPAIRMENT [None]
